FAERS Safety Report 7537726-7 (Version None)
Quarter: 2011Q2

REPORT INFORMATION
  Report Type: 
  Country: None (occurrence: None)
  Receive Date: 20110609
  Receipt Date: 20071105
  Transmission Date: 20111010
  Serious: Yes (Other)
  Sender: FDA-Public Use
  Company Number: PHMT2006CA01878

PATIENT
  Sex: Female

DRUGS (3)
  1. TEGRETOL [Suspect]
     Dosage: 600 MG, QD
     Route: 048
  2. TEGRETOL [Suspect]
     Dosage: 400 MG, QD
     Route: 048
  3. TEGRETOL [Suspect]
     Indication: EPILEPSY
     Dosage: 500 MG, QD
     Route: 048
     Dates: start: 19810101

REACTIONS (2)
  - ABORTION SPONTANEOUS [None]
  - DRUG EXPOSURE DURING PREGNANCY [None]
